FAERS Safety Report 12986604 (Version 1)
Quarter: 2016Q4

REPORT INFORMATION
  Report Type: Spontaneous
  Country: US (occurrence: US)
  Receive Date: 20161129
  Receipt Date: 20161129
  Transmission Date: 20170207
  Serious: Yes (Hospitalization)
  Sender: FDA-Public Use
  Company Number: None

PATIENT
  Age: 89 Year
  Sex: Female
  Weight: 63.2 kg

DRUGS (12)
  1. TYLENOL [Concomitant]
     Active Substance: ACETAMINOPHEN
  2. COREG [Concomitant]
     Active Substance: CARVEDILOL
  3. AMIODARONE [Concomitant]
     Active Substance: AMIODARONE
  4. LASIX [Concomitant]
     Active Substance: FUROSEMIDE
  5. SYNTHROID [Concomitant]
     Active Substance: LEVOTHYROXINE SODIUM
  6. ASPIRIN 81MG [Concomitant]
     Active Substance: ASPIRIN
  7. PLAVIX [Concomitant]
     Active Substance: CLOPIDOGREL BISULFATE
  8. LISINOPRIL. [Concomitant]
     Active Substance: LISINOPRIL
  9. MELATONIN [Concomitant]
     Active Substance: MELATONIN
  10. GLIMEPIRIDE. [Suspect]
     Active Substance: GLIMEPIRIDE
     Indication: TYPE 2 DIABETES MELLITUS
     Route: 048
  11. COLACE [Concomitant]
     Active Substance: DOCUSATE SODIUM
  12. THERAGRAN [Concomitant]
     Active Substance: VITAMINS

REACTIONS (6)
  - Hypercapnia [None]
  - Pneumonia [None]
  - Hypoglycaemia [None]
  - Aphasia [None]
  - Hypoxia [None]
  - Mental status changes [None]

NARRATIVE: CASE EVENT DATE: 20161010
